FAERS Safety Report 5415246-3 (Version None)
Quarter: 2007Q3

REPORT INFORMATION
  Report Type: 
  Country: None (occurrence: None)
  Receive Date: 20070813
  Receipt Date: 20070723
  Transmission Date: 20080115
  Serious: Yes (Hospitalization, Other)
  Sender: FDA-Public Use
  Company Number: 2007RR-08879

PATIENT
  Age: 74 Year
  Sex: Male

DRUGS (5)
  1. LOPERAMIDE [Suspect]
     Indication: DIARRHOEA
     Dosage: ORAL
     Route: 048
  2. CEFOTIAM (CEFOTIAM) [Concomitant]
  3. CLINDAMYCIN (CLINDAMYCIN) [Concomitant]
  4. CEFCAPENE PIVOXIL (CEFCAPENE PIVOXIL) [Concomitant]
  5. TAXOTERE [Concomitant]

REACTIONS (4)
  - BLOOD ALBUMIN DECREASED [None]
  - CLOSTRIDIUM DIFFICILE COLITIS [None]
  - MEGACOLON [None]
  - NO THERAPEUTIC RESPONSE [None]
